FAERS Safety Report 19918511 (Version 5)
Quarter: 2021Q4

REPORT INFORMATION
  Report Type: Spontaneous
  Country: TH (occurrence: TH)
  Receive Date: 20211005
  Receipt Date: 20211030
  Transmission Date: 20220303
  Serious: Yes (Hospitalization, Other)
  Sender: FDA-Public Use
  Company Number: NVSC2021TH220252

PATIENT
  Age: 9 Year
  Sex: Female

DRUGS (8)
  1. ELTROMBOPAG OLAMINE [Suspect]
     Active Substance: ELTROMBOPAG OLAMINE
     Indication: Aplastic anaemia
     Dosage: UNK, QD (50 TO 100 MG)
     Route: 065
  2. ELTROMBOPAG OLAMINE [Suspect]
     Active Substance: ELTROMBOPAG OLAMINE
     Dosage: 125 MG
     Route: 048
     Dates: start: 20210702, end: 20211001
  3. ELTROMBOPAG OLAMINE [Suspect]
     Active Substance: ELTROMBOPAG OLAMINE
     Dosage: 62.5 MG
     Route: 048
     Dates: start: 20210702
  4. ELTROMBOPAG OLAMINE [Suspect]
     Active Substance: ELTROMBOPAG OLAMINE
     Dosage: 25 MG
     Route: 048
     Dates: start: 20210705, end: 20211001
  5. CYCLOSPORINE [Concomitant]
     Active Substance: CYCLOSPORINE
     Indication: Aplastic anaemia
     Dosage: UNK, (SOLUTION)
     Route: 048
     Dates: start: 20210705
  6. MICAFUNGIN [Concomitant]
     Active Substance: MICAFUNGIN
     Indication: Systemic mycosis
     Dosage: UNK, (SOLUTION)
     Route: 042
     Dates: start: 20210908
  7. VORICONAZOLE [Concomitant]
     Active Substance: VORICONAZOLE
     Indication: Bronchopulmonary aspergillosis
     Dosage: UNK
     Route: 048
     Dates: start: 20210726
  8. MEROPENEM [Concomitant]
     Active Substance: MEROPENEM
     Indication: Febrile neutropenia
     Dosage: UNK, (SOLUTION)
     Route: 042
     Dates: start: 20210721, end: 20210917

REACTIONS (18)
  - Transaminases increased [Recovering/Resolving]
  - Hyperbilirubinaemia [Recovering/Resolving]
  - Acute kidney injury [Unknown]
  - Leukopenia [Unknown]
  - Thrombocytopenia [Recovered/Resolved]
  - Anaemia [Unknown]
  - Serum sickness [Unknown]
  - Hypertension [Unknown]
  - Haematuria [Recovered/Resolved]
  - Liver disorder [Unknown]
  - Lung consolidation [Unknown]
  - Blood alkaline phosphatase increased [Recovering/Resolving]
  - Abdominal pain upper [Unknown]
  - Alanine aminotransferase increased [Recovered/Resolved]
  - Aspartate aminotransferase increased [Recovered/Resolved]
  - Blood bilirubin increased [Recovering/Resolving]
  - Bilirubin conjugated increased [Recovering/Resolving]
  - Product use issue [Unknown]

NARRATIVE: CASE EVENT DATE: 20210728
